FAERS Safety Report 15365620 (Version 1)
Quarter: 2018Q3

REPORT INFORMATION
  Report Type: Spontaneous
  Country: IT (occurrence: IT)
  Receive Date: 20180910
  Receipt Date: 20180910
  Transmission Date: 20181010
  Serious: Yes (Other)
  Sender: FDA-Public Use
  Company Number: IT-SA-2018SA243585

PATIENT
  Age: 24 Year
  Sex: Male

DRUGS (2)
  1. ANTI?THYMOCYTE GLOBULIN (RABBIT) NOS [Suspect]
     Active Substance: LAPINE T-LYMPHOCYTE IMMUNE GLOBULIN
     Indication: APLASTIC ANAEMIA
  2. ANTI?THYMOCYTE GLOBULIN (RABBIT) NOS [Suspect]
     Active Substance: LAPINE T-LYMPHOCYTE IMMUNE GLOBULIN
     Indication: IMMUNOSUPPRESSION
     Dosage: 40 MG, QD
     Route: 065

REACTIONS (7)
  - Musculoskeletal pain [Unknown]
  - Pyrexia [Unknown]
  - Chills [Unknown]
  - Oedema [Unknown]
  - Haemolysis [Recovered/Resolved]
  - Complement factor increased [Recovered/Resolved]
  - Purpura [Unknown]
